FAERS Safety Report 17873443 (Version 1)
Quarter: 2020Q2

REPORT INFORMATION
  Report Type: Spontaneous
  Country: FR (occurrence: FR)
  Receive Date: 20200609
  Receipt Date: 20200609
  Transmission Date: 20200714
  Serious: Yes (Hospitalization, Other)
  Sender: FDA-Public Use
  Company Number: FR-AUROBINDO-AUR-APL-2020-027139

PATIENT
  Age: 76 Year
  Sex: Female

DRUGS (4)
  1. AMOXICILLIN ARROW [Suspect]
     Active Substance: AMOXICILLIN
     Indication: INFECTION
     Dosage: 3 GRAM, ONCE A DAY
     Route: 048
     Dates: start: 20200417, end: 20200423
  2. CIPROFLOXACIN HYDROCHLORIDE ARROW FILM-COATED TABLET 750 MG [Suspect]
     Active Substance: CIPROFLOXACIN HYDROCHLORIDE
     Indication: INFECTION
     Dosage: 2250 MILLIGRAM, ONCE A DAY
     Route: 048
     Dates: start: 20200404, end: 20200423
  3. RAMIPRIL MYLAN [Suspect]
     Active Substance: RAMIPRIL
     Indication: HYPERTENSION
     Dosage: 5 MILLIGRAM, ONCE A DAY
     Route: 048
     Dates: start: 20200412, end: 20200423
  4. PIPERACILLINE PANPHARMA [Suspect]
     Active Substance: PIPERACILLIN SODIUM
     Indication: INFECTION
     Dosage: 16 GRAM, ONCE A DAY
     Route: 042
     Dates: start: 20200402, end: 20200417

REACTIONS (1)
  - Acute kidney injury [Recovering/Resolving]

NARRATIVE: CASE EVENT DATE: 20200421
